FAERS Safety Report 20235500 (Version 1)
Quarter: 2021Q4

REPORT INFORMATION
  Report Type: Spontaneous
  Country: US (occurrence: US)
  Receive Date: 20211228
  Receipt Date: 20211228
  Transmission Date: 20220303
  Serious: No
  Sender: FDA-Public Use
  Company Number: US-ViiV Healthcare Limited-72863

PATIENT
  Sex: Male

DRUGS (4)
  1. RILPIVIRINE [Suspect]
     Active Substance: RILPIVIRINE
     Indication: Product used for unknown indication
     Dosage: UNK
     Route: 030
     Dates: start: 202112
  2. CABOTEGRAVIR [Suspect]
     Active Substance: CABOTEGRAVIR
     Indication: Product used for unknown indication
     Route: 042
     Dates: start: 202112
  3. CABOTEGRAVIR SODIUM [Concomitant]
     Active Substance: CABOTEGRAVIR SODIUM
     Indication: Product used for unknown indication
     Route: 048
  4. EDURANT [Concomitant]
     Active Substance: RILPIVIRINE HYDROCHLORIDE
     Indication: Product used for unknown indication
     Route: 048

REACTIONS (5)
  - Pruritus [Recovered/Resolved]
  - Administration site warmth [Recovered/Resolved]
  - Erythema [Recovered/Resolved]
  - Gastric dilatation [Unknown]
  - Abdominal distension [Unknown]

NARRATIVE: CASE EVENT DATE: 20211201
